FAERS Safety Report 17239724 (Version 2)
Quarter: 2020Q2

REPORT INFORMATION
  Report Type: Report from Study
  Country: None (occurrence: US)
  Receive Date: 20200106
  Receipt Date: 20200519
  Transmission Date: 20200713
  Serious: Yes (Hospitalization)
  Sender: FDA-Public Use
  Company Number: US-ABBVIE-20K-163-3219035-00

PATIENT
  Age: 38 Year
  Sex: Female
  Weight: 95.34 kg

DRUGS (1)
  1. HUMIRA [Suspect]
     Active Substance: ADALIMUMAB
     Indication: UVEITIS
     Route: 058

REACTIONS (13)
  - Dysarthria [Recovered/Resolved]
  - Hyperhidrosis [Recovered/Resolved]
  - Nausea [Unknown]
  - Menorrhagia [Recovering/Resolving]
  - Asthenia [Unknown]
  - Presyncope [Unknown]
  - Anaemia [Recovering/Resolving]
  - Loss of consciousness [Recovered/Resolved]
  - Dysarthria [Recovered/Resolved]
  - Loss of consciousness [Recovered/Resolved]
  - Hyperhidrosis [Recovered/Resolved]
  - Blood creatine phosphokinase increased [Unknown]
  - Bradycardia [Unknown]

NARRATIVE: CASE EVENT DATE: 20190723
